FAERS Safety Report 10276846 (Version 1)
Quarter: 2014Q3

REPORT INFORMATION
  Report Type: Spontaneous
  Country: US (occurrence: US)
  Receive Date: 20140703
  Receipt Date: 20140703
  Transmission Date: 20150326
  Serious: No
  Sender: FDA-Public Use
  Company Number: US-TARO-2013P1019792

PATIENT
  Age: 55 Year
  Sex: Female
  Weight: 63.5 kg

DRUGS (5)
  1. APPLE CIDER VINEGAR [Concomitant]
     Active Substance: APPLE CIDER VINEGAR
     Dosage: 1 TSP
  2. SIMVASTATIN. [Concomitant]
     Active Substance: SIMVASTATIN
  3. ATENOLOL. [Concomitant]
     Active Substance: ATENOLOL
  4. CLOTRIMAZOLE/BETAMETHASONE DIPROPIONATE CREAM USP 1%/0.05% [Suspect]
     Active Substance: BETAMETHASONE DIPROPIONATE\CLOTRIMAZOLE
     Indication: TINEA PEDIS
     Dosage: BID
     Route: 061
     Dates: start: 20130808
  5. BABY ASPIRIN [Concomitant]
     Active Substance: ASPIRIN
     Dosage: QD

REACTIONS (1)
  - Drug ineffective [Not Recovered/Not Resolved]

NARRATIVE: CASE EVENT DATE: 20130808
